FAERS Safety Report 8458267-9 (Version None)
Quarter: 2012Q2

REPORT INFORMATION
  Report Type: 
  Country: None (occurrence: None)
  Receive Date: 20120615
  Receipt Date: 20120613
  Transmission Date: 20120825
  Serious: Yes (Other)
  Sender: FDA-Public Use
  Company Number: ADR-2011-11305

PATIENT
  Age: 65 Year
  Sex: Male

DRUGS (1)
  1. LIORESAL [Suspect]
     Indication: PAIN
     Dosage: MCG, DAILY, INTRATH
     Route: 037

REACTIONS (5)
  - SEDATION [None]
  - DRUG INEFFECTIVE [None]
  - FEELING ABNORMAL [None]
  - BEDRIDDEN [None]
  - COMA [None]
